FAERS Safety Report 6661283-0 (Version None)
Quarter: 2010Q1

REPORT INFORMATION
  Report Type: 
  Country: None (occurrence: None)
  Receive Date: 20100329
  Receipt Date: 20100319
  Transmission Date: 20100710
  Serious: No
  Sender: FDA-Public Use
  Company Number: S07-USA-02779-01

PATIENT
  Age: 65 Year
  Sex: Male

DRUGS (5)
  1. THYROID TAB [Suspect]
     Indication: HYPOTHYROIDISM
     Dosage: ORAL
     Route: 048
     Dates: start: 19770101
  2. THYROID TAB [Suspect]
     Indication: HYPOTHYROIDISM
     Dosage: 120 MG (120 MG, 1 IN 1 D), ORAL
     Route: 048
     Dates: end: 20070401
  3. THYROID TAB [Suspect]
     Indication: HYPOTHYROIDISM
     Dosage: SEE IMAGE
     Route: 048
     Dates: start: 20070401
  4. THYROID TAB [Suspect]
     Indication: HYPOTHYROIDISM
     Dosage: SEE IMAGE
     Route: 048
     Dates: start: 20070401
  5. FISH OIL [Concomitant]

REACTIONS (9)
  - BLOOD CHOLESTEROL INCREASED [None]
  - BLOOD THYROID STIMULATING HORMONE INCREASED [None]
  - CORONARY ARTERY OCCLUSION [None]
  - FATIGUE [None]
  - INSOMNIA [None]
  - NIGHT SWEATS [None]
  - THYROXINE INCREASED [None]
  - TRI-IODOTHYRONINE INCREASED [None]
  - WEIGHT INCREASED [None]
